FAERS Safety Report 12119743 (Version 1)
Quarter: 2016Q1

REPORT INFORMATION
  Report Type: Spontaneous
  Country: FR (occurrence: FR)
  Receive Date: 20160226
  Receipt Date: 20160226
  Transmission Date: 20160526
  Serious: Yes (Hospitalization, Other)
  Sender: FDA-Public Use
  Company Number: FR-TEVA-636272ISR

PATIENT
  Sex: Female

DRUGS (2)
  1. AMOXICILLINE TEVA 1 G [Suspect]
     Active Substance: AMOXICILLIN
     Dosage: 2 DOSAGE FORMS DAILY;
     Route: 048
     Dates: start: 20160213, end: 20160213
  2. PARACETAMOL [Concomitant]
     Active Substance: ACETAMINOPHEN
     Indication: PAIN

REACTIONS (3)
  - Erythema [Recovered/Resolved]
  - Asphyxia [Recovered/Resolved]
  - Oesophageal obstruction [Recovered/Resolved]

NARRATIVE: CASE EVENT DATE: 20160213
